FAERS Safety Report 21494437 (Version 1)
Quarter: 2022Q4

REPORT INFORMATION
  Report Type: Spontaneous
  Country: US (occurrence: US)
  Receive Date: 20221021
  Receipt Date: 20221021
  Transmission Date: 20230113
  Serious: No
  Sender: FDA-Public Use
  Company Number: US-BRACCO-2022US02675

PATIENT
  Sex: Female

DRUGS (1)
  1. BARIUM SULFATE [Suspect]
     Active Substance: BARIUM SULFATE
     Indication: Computerised tomogram intestine

REACTIONS (2)
  - Expired product administered [Unknown]
  - No adverse event [Unknown]
